FAERS Safety Report 5570427-3 (Version None)
Quarter: 2007Q4

REPORT INFORMATION
  Report Type: 
  Country: None (occurrence: None)
  Receive Date: 20071221
  Receipt Date: 20071214
  Transmission Date: 20080405
  Serious: Yes (Hospitalization)
  Sender: FDA-Public Use
  Company Number: PHBS2007IN20998

PATIENT
  Age: 36 Year
  Sex: Male

DRUGS (4)
  1. CYCLOSPORINE [Suspect]
     Indication: RENAL TRANSPLANT
     Dates: start: 20050101
  2. PREDNISOLONE [Concomitant]
     Indication: RENAL TRANSPLANT
     Dates: start: 20050101
  3. AZATHIOPRINE [Concomitant]
     Indication: RENAL TRANSPLANT
     Dates: start: 20050101
  4. DICUMAROL [Concomitant]

REACTIONS (9)
  - BLOOD HOMOCYSTEINE INCREASED [None]
  - CEREBRAL VENOUS THROMBOSIS [None]
  - HEADACHE [None]
  - IRRITABILITY [None]
  - PAPILLOEDEMA [None]
  - PROTEIN C DECREASED [None]
  - PROTEIN S DECREASED [None]
  - VISION BLURRED [None]
  - VOMITING [None]
